FAERS Safety Report 6232119-7 (Version None)
Quarter: 2009Q2

REPORT INFORMATION
  Report Type: 
  Country: None (occurrence: None)
  Receive Date: 20090617
  Receipt Date: 20070607
  Transmission Date: 20091009
  Serious: Yes (Other)
  Sender: FDA-Public Use
  Company Number: US-ASTRAZENECA-2006UW21926

PATIENT
  Sex: Male
  Weight: 85 kg

DRUGS (5)
  1. SEROQUEL [Suspect]
     Indication: ANXIETY
     Dosage: 50 MG TO 300 MG
     Route: 048
     Dates: start: 20020729
  2. SEROQUEL [Suspect]
     Indication: SCHIZOPHRENIA
     Dosage: 50 MG TO 300 MG
     Route: 048
     Dates: start: 20020729
  3. RISPERDAL [Concomitant]
  4. ZYPREXA [Concomitant]
  5. CELEXA [Concomitant]
     Dates: start: 20020729

REACTIONS (3)
  - DIABETES MELLITUS [None]
  - DIABETIC KETOACIDOSIS [None]
  - PANCREATITIS [None]
